FAERS Safety Report 5628668-2 (Version None)
Quarter: 2008Q1

REPORT INFORMATION
  Report Type: 
  Country: None (occurrence: None)
  Receive Date: 20080215
  Receipt Date: 20080206
  Transmission Date: 20080703
  Serious: Yes (Other)
  Sender: FDA-Public Use
  Company Number: US-PFIZER INC-2008012040

PATIENT
  Age: 58 Year
  Sex: Female
  Weight: 94.3 kg

DRUGS (1)
  1. LIPITOR [Suspect]

REACTIONS (2)
  - HEPATIC STEATOSIS [None]
  - PANCREATITIS [None]
